FAERS Safety Report 6720115-2 (Version None)
Quarter: 2010Q2

REPORT INFORMATION
  Report Type: 
  Country: None (occurrence: None)
  Receive Date: 20100505
  Receipt Date: 20100422
  Transmission Date: 20101027
  Serious: Yes (Other)
  Sender: FDA-Public Use
  Company Number: 2010-00413

PATIENT
  Age: 68 Year
  Sex: Female

DRUGS (3)
  1. PERINDOPRIL [Suspect]
     Indication: DRUG USE FOR UNKNOWN INDICATION
     Dosage: 8 MG
     Dates: start: 20060101, end: 20100101
  2. EZETIMIBE [Suspect]
     Indication: DRUG USE FOR UNKNOWN INDICATION
     Dosage: 10 MG (1 IN 1 D)
     Dates: start: 20060101, end: 20100101
  3. CANDESARTAN CILEXETIL [Suspect]
     Indication: DRUG USE FOR UNKNOWN INDICATION
     Dosage: 4 MG (1 IN 1 D), ORAL
     Route: 048
     Dates: start: 20060101, end: 20100101

REACTIONS (12)
  - AGEUSIA [None]
  - ANOSMIA [None]
  - BULBAR PALSY [None]
  - CHAPPED LIPS [None]
  - DRY EYE [None]
  - DYSPHAGIA [None]
  - EYE PRURITUS [None]
  - GLOSSODYNIA [None]
  - LIP SWELLING [None]
  - MOTOR NEURONE DISEASE [None]
  - SPEECH DISORDER [None]
  - SWOLLEN TONGUE [None]
